FAERS Safety Report 5720102-7 (Version None)
Quarter: 2008Q2

REPORT INFORMATION
  Report Type: 
  Country: None (occurrence: None)
  Receive Date: 20080423
  Receipt Date: 20071003
  Transmission Date: 20081010
  Serious: Yes (Hospitalization)
  Sender: FDA-Public Use
  Company Number: 245338

PATIENT
  Age: 80 Year
  Sex: Female

DRUGS (3)
  1. AVASTIN [Suspect]
     Indication: BREAST CANCER
     Dosage: 10 MG/KG, Q2W
     Dates: start: 20060411
  2. AREDIA [Concomitant]
  3. ANTIBIOTICS (NOT SPECIFIED) (ANTIBIOTICS NOS) [Concomitant]

REACTIONS (1)
  - PULMONARY EMBOLISM [None]
